FAERS Safety Report 4538168-9 (Version None)
Quarter: 2004Q4

REPORT INFORMATION
  Report Type: 
  Country: None (occurrence: None)
  Receive Date: 20041221
  Receipt Date: 20040217
  Transmission Date: 20050328
  Serious: Yes (Life-Threatening)
  Sender: FDA-Public Use
  Company Number: 805#1#2004-00003

PATIENT
  Age: 75 Year
  Sex: Male

DRUGS (5)
  1. PROSTANDIN                       (ALPROSTADIL (PAOD)) [Suspect]
     Indication: ATHEROSCLEROSIS OBLITERANS
     Dosage: 1.120 MCG (60MCG 2 IN 1 DAY(S)), INTRAVENOUS DRIP; 80 MCG (40MCG 2 IN 1 DAY(S))
     Route: 041
     Dates: start: 20040121, end: 20040127
  2. PROSTANDIN                       (ALPROSTADIL (PAOD)) [Suspect]
     Indication: ATHEROSCLEROSIS OBLITERANS
     Dosage: 1.120 MCG (60MCG 2 IN 1 DAY(S)), INTRAVENOUS DRIP; 80 MCG (40MCG 2 IN 1 DAY(S))
     Route: 041
     Dates: start: 20040128, end: 20040129
  3. NIFEDIPINE [Concomitant]
  4. ENLAPRIL-MALEATE (ENALAPRIL MALEATE) [Concomitant]
  5. SODIUM BICARBONATE IN PLASTIC CONTAINER [Concomitant]

REACTIONS (9)
  - AORTIC STENOSIS [None]
  - AORTIC VALVE INCOMPETENCE [None]
  - ASCITES [None]
  - CARDIOMEGALY [None]
  - DIASTOLIC DYSFUNCTION [None]
  - PLEURAL EFFUSION [None]
  - REFUSAL OF TREATMENT BY PATIENT [None]
  - RENAL FAILURE ACUTE [None]
  - VENTRICULAR HYPERTROPHY [None]
